FAERS Safety Report 9056593 (Version 1)
Quarter: 2013Q1

REPORT INFORMATION
  Report Type: Report from Study
  Country: CA (occurrence: CA)
  Receive Date: 20130204
  Receipt Date: 20130204
  Transmission Date: 20140127
  Serious: Yes (Hospitalization)
  Sender: FDA-Public Use
  Company Number: CA-CELGENEUS-028-AB007-12100575

PATIENT
  Age: 52 None
  Sex: Male
  Weight: 84.9 kg

DRUGS (11)
  1. ABI-007 [Suspect]
     Indication: ADENOCARCINOMA PANCREAS
     Dosage: 125 MILLIGRAM/SQ. METER
     Route: 041
     Dates: start: 20110413, end: 20120822
  2. ABI-007 [Suspect]
     Dosage: 75 MILLIGRAM/SQ. METER
     Route: 041
     Dates: start: 20120829
  3. GEMCITABINE [Suspect]
     Indication: ADENOCARCINOMA PANCREAS
     Dosage: 1000 MILLIGRAM/SQ. METER
     Route: 041
     Dates: start: 20110413, end: 20120822
  4. GEMCITABINE [Suspect]
     Dosage: 600 MILLIGRAM/SQ. METER
     Route: 041
     Dates: start: 20120829
  5. HEPARINE [Concomitant]
     Indication: CARDIOVASCULAR EVENT PROPHYLAXIS
     Route: 058
     Dates: start: 20120817, end: 20120820
  6. GRAVOL [Concomitant]
     Indication: NAUSEA
     Route: 041
     Dates: start: 20120817, end: 20120820
  7. DILAUDID [Concomitant]
     Indication: ABDOMINAL PAIN
     Route: 048
     Dates: start: 20120817, end: 20120820
  8. POTASSIUM [Concomitant]
     Indication: HYPOKALAEMIA
     Route: 041
     Dates: start: 20120817, end: 20120820
  9. ZOFRAN [Concomitant]
     Indication: NAUSEA
     Route: 041
     Dates: start: 20120818, end: 20120820
  10. DOCUSATE [Concomitant]
     Indication: CONSTIPATION
     Route: 048
     Dates: start: 20120706
  11. VITAMIN D [Concomitant]
     Indication: OSTEOPOROSIS PROPHYLAXIS
     Route: 048
     Dates: start: 20120706

REACTIONS (1)
  - Cholangitis [Recovered/Resolved]
